FAERS Safety Report 6409267-1 (Version None)
Quarter: 2009Q4

REPORT INFORMATION
  Report Type: 
  Country: None (occurrence: None)
  Receive Date: 20091021
  Receipt Date: 20091014
  Transmission Date: 20100525
  Serious: Yes (Life-Threatening)
  Sender: FDA-Public Use
  Company Number: FR-MYLANLABS-2009S1017492

PATIENT
  Age: 6 Year
  Sex: Male
  Weight: 19 kg

DRUGS (1)
  1. ONDANSETRON [Suspect]
     Indication: VOMITING
     Route: 042
     Dates: start: 20090904, end: 20090904

REACTIONS (3)
  - COUGH [None]
  - OROPHARYNGEAL DISCOMFORT [None]
  - VOMITING [None]
